FAERS Safety Report 14709071 (Version 1)
Quarter: 2018Q2

REPORT INFORMATION
  Report Type: Spontaneous
  Country: FR (occurrence: FR)
  Receive Date: 20180403
  Receipt Date: 20180403
  Transmission Date: 20180711
  Serious: Yes (Life-Threatening)
  Sender: FDA-Public Use
  Company Number: FR-AUROBINDO-AUR-APL-2018-017138

PATIENT
  Age: 61 Year
  Sex: Female
  Weight: 82.4 kg

DRUGS (1)
  1. METFORMIN [Suspect]
     Active Substance: METFORMIN HYDROCHLORIDE
     Indication: TYPE 2 DIABETES MELLITUS
     Route: 048
     Dates: end: 20171226

REACTIONS (2)
  - Lactic acidosis [Recovered/Resolved]
  - Oedematous pancreatitis [Recovering/Resolving]

NARRATIVE: CASE EVENT DATE: 20171226
